FAERS Safety Report 20751737 (Version 2)
Quarter: 2022Q2

REPORT INFORMATION
  Report Type: Spontaneous
  Country: AR (occurrence: AR)
  Receive Date: 20220426
  Receipt Date: 20220607
  Transmission Date: 20220721
  Serious: Yes (Hospitalization)
  Sender: FDA-Public Use
  Company Number: AR-NOVARTISPH-NVSC2022AR094682

PATIENT
  Age: 89 Year
  Sex: Female

DRUGS (4)
  1. INDACATEROL [Suspect]
     Active Substance: INDACATEROL
     Indication: Chronic obstructive pulmonary disease
     Dosage: 1 DOSAGE FORM (0.15 MG), PRN (DAILY, WHEN NEEDED) (3 YEARS AGO APPROXIMATELY)
     Route: 065
  2. VALSARTAN [Concomitant]
     Active Substance: VALSARTAN
     Indication: Product used for unknown indication
     Dosage: 320 MG, QD (SINCE 3 OR 4 YEARS AGO)
     Route: 065
  3. AMLODIPINE [Concomitant]
     Active Substance: AMLODIPINE BESYLATE
     Indication: Product used for unknown indication
     Dosage: 5 MG, QD (SINCE 3 OR 4 YEARS AGO)
     Route: 065
  4. DIOCAM [Concomitant]
     Indication: Product used for unknown indication
     Dosage: 0.5 DOSAGE FORM, PRN (AT NIGHT WHEN NECESSARY)
     Route: 065

REACTIONS (6)
  - Blood pressure increased [Recovered/Resolved]
  - Dyspnoea [Unknown]
  - Nervousness [Unknown]
  - Abdominal pain upper [Unknown]
  - Blood pressure increased [Recovered/Resolved]
  - Wrong technique in product usage process [Unknown]

NARRATIVE: CASE EVENT DATE: 20220412
